FAERS Safety Report 19924407 (Version 1)
Quarter: 2021Q4

REPORT INFORMATION
  Report Type: Spontaneous
  Country: US (occurrence: US)
  Receive Date: 20211006
  Receipt Date: 20211006
  Transmission Date: 20220303
  Serious: Yes (Disabling, Other)
  Sender: FDA-Public Use
  Company Number: US-AMERICAN REGENT INC-20180871

PATIENT
  Age: 34 Year
  Sex: Female
  Weight: 118.5 kg

DRUGS (23)
  1. INJECTAFER [Suspect]
     Active Substance: FERRIC CARBOXYMALTOSE
     Indication: Iron deficiency anaemia
     Dosage: 750 MILLIGRAM, SINGLE
     Route: 042
     Dates: start: 20180503, end: 20180503
  2. INJECTAFER [Suspect]
     Active Substance: FERRIC CARBOXYMALTOSE
     Dosage: UNK UNK
     Dates: start: 20180510, end: 20180510
  3. TYLENOL ARTHRITIS PAIN [Concomitant]
     Active Substance: ACETAMINOPHEN
     Dosage: 650MG EVERY 8 HOURS AS NEEDED
     Route: 048
  4. VITAMIN C [Concomitant]
     Active Substance: ASCORBIC ACID
     Dosage: 1,000 MG DAILY
     Route: 048
  5. ASTELIN [Concomitant]
     Active Substance: AZELASTINE HYDROCHLORIDE
     Indication: Product used for unknown indication
     Route: 045
     Dates: start: 20170913
  6. BARIATRIC FUSION [Concomitant]
     Indication: Product used for unknown indication
     Dosage: 1 TABLET  TWICE DAILY
     Route: 048
  7. VITAMIN D3 [Concomitant]
     Active Substance: CHOLECALCIFEROL
     Indication: Product used for unknown indication
     Dosage: ALTERNATE 2 AND 3 CHEWS DAILY
     Route: 048
     Dates: start: 20170313
  8. CYMBALTA [Concomitant]
     Active Substance: DULOXETINE HYDROCHLORIDE
     Indication: Product used for unknown indication
     Dosage: 2 CAPSULES DAILY
     Route: 048
     Dates: start: 20180529
  9. FERROUS SULFATE [Concomitant]
     Active Substance: FERROUS SULFATE
     Indication: Product used for unknown indication
     Dosage: 300 MG DAILY
     Route: 048
  10. NEURONTIN [Concomitant]
     Active Substance: GABAPENTIN
     Indication: Pain
     Dosage: 1 CAPSULE THREE TIMES DAILY
     Route: 048
     Dates: start: 20180619
  11. NORCO [Concomitant]
     Active Substance: ACETAMINOPHEN\HYDROCODONE BITARTRATE
     Dosage: 1 TABLET DAILY AS NEEDED
     Route: 048
     Dates: start: 20180530
  12. PROBIOTIC-10 [Concomitant]
     Indication: Product used for unknown indication
     Dosage: 1CAPSULE TWICE DAILY AS NEEDED
     Route: 048
  13. SYNTHROID [Concomitant]
     Active Substance: LEVOTHYROXINE SODIUM
     Indication: Product used for unknown indication
     Dosage: 1 TABLET DAILY
     Route: 048
     Dates: start: 20180426
  14. NASONEX [Concomitant]
     Active Substance: MOMETASONE FUROATE
     Indication: Product used for unknown indication
     Dosage: 2 SPRAYS BY NASAL ROUTE DAILY
     Route: 045
  15. PRILOSEC [Concomitant]
     Active Substance: OMEPRAZOLE MAGNESIUM
     Indication: Product used for unknown indication
     Dosage: 1 CAPSULE  TWICE DAILY
     Route: 048
     Dates: start: 20180406
  16. ZOFRAN [Concomitant]
     Active Substance: ONDANSETRON HYDROCHLORIDE
     Indication: Nausea
     Dosage: 10 MLS EVERY 8 HOURS AS NEEDED
     Route: 048
     Dates: start: 20180227
  17. CARAFATE [Concomitant]
     Active Substance: SUCRALFATE
     Indication: Product used for unknown indication
     Dosage: 10 MLS 4 TIMES DAILY
     Route: 048
     Dates: start: 20180104
  18. TOPAMAX [Concomitant]
     Active Substance: TOPIRAMATE
     Indication: Product used for unknown indication
     Dosage: 2 TABLETS NIGHTLY 6 MONTHS 3 WEEKS
     Route: 048
     Dates: start: 20180125, end: 20180814
  19. CELEBREX [Concomitant]
     Active Substance: CELECOXIB
     Indication: Product used for unknown indication
     Dosage: 200 MG 9 WEEKS 1 DAYS
     Route: 048
     Dates: start: 20180417, end: 20180619
  20. NIZORAL [Concomitant]
     Active Substance: KETOCONAZOLE
     Indication: Product used for unknown indication
     Dosage: APPLY TO AFFECTED AREAS DAILY LEAVE IN PLACE FOR 5 MINUTES FOR 5 DAYS
     Route: 061
     Dates: start: 20180519, end: 20180619
  21. ADIPEX-P [Concomitant]
     Active Substance: PHENTERMINE HYDROCHLORIDE
     Indication: Product used for unknown indication
     Dosage: 1 TABLET DAILY AT 11 AM 31 DAYS
     Route: 048
     Dates: start: 20180504, end: 20180603
  22. PEPCID AC [Concomitant]
     Active Substance: FAMOTIDINE
     Indication: Premedication
     Dosage: 40 MILLIGRAM, ADMINSTER PRIOR TO INFUSION
     Route: 048
     Dates: start: 20180503, end: 20180503
  23. TYLENOL [Concomitant]
     Active Substance: ACETAMINOPHEN
     Indication: Premedication
     Dosage: 650 MILLIGRAM, GIVE 30-60 MINUTES PRIOR TO INFUSION
     Route: 048
     Dates: start: 20180503, end: 20180503

REACTIONS (26)
  - Pain [Not Recovered/Not Resolved]
  - Muscle spasms [Not Recovered/Not Resolved]
  - Musculoskeletal stiffness [Not Recovered/Not Resolved]
  - Neuralgia [Unknown]
  - Sleep disorder [Not Recovered/Not Resolved]
  - Loss of personal independence in daily activities [Unknown]
  - Hypophosphataemia [Recovering/Resolving]
  - Arthralgia [Not Recovered/Not Resolved]
  - Paraesthesia [Not Recovered/Not Resolved]
  - Rash [Recovered/Resolved]
  - Bone pain [Recovered/Resolved]
  - Muscular weakness [Recovering/Resolving]
  - Hypoaesthesia [Recovering/Resolving]
  - Myalgia [Recovering/Resolving]
  - Burning sensation [Unknown]
  - Pain in extremity [Unknown]
  - Peripheral swelling [Unknown]
  - Fatigue [Recovering/Resolving]
  - Movement disorder [Unknown]
  - Depression [Not Recovered/Not Resolved]
  - Anhedonia [Not Recovered/Not Resolved]
  - Emotional distress [Not Recovered/Not Resolved]
  - Anxiety [Not Recovered/Not Resolved]
  - Nausea [Recovered/Resolved]
  - Back pain [Recovered/Resolved]
  - Product quality issue [Unknown]

NARRATIVE: CASE EVENT DATE: 20180101
